FAERS Safety Report 10813715 (Version 1)
Quarter: 2015Q1

REPORT INFORMATION
  Report Type: Spontaneous
  Country: ZA (occurrence: ZA)
  Receive Date: 20150218
  Receipt Date: 20150218
  Transmission Date: 20150721
  Serious: Yes (Hospitalization)
  Sender: FDA-Public Use
  Company Number: ZA-MYLANLABS-2015M1003546

PATIENT

DRUGS (6)
  1. FUROSEMIDE. [Suspect]
     Active Substance: FUROSEMIDE
     Indication: DIURETIC THERAPY
     Dosage: 40 MG, QD
  2. ASPEN                              /00002701/ [Concomitant]
     Indication: ANTICOAGULANT THERAPY
     Dosage: 5 MG, UNK
  3. PLENISH-K [Concomitant]
     Indication: BLOOD POTASSIUM
     Dosage: 600 MG, UNK
  4. ELANTAN [Concomitant]
     Active Substance: ISOSORBIDE MONONITRATE
     Indication: CARDIAC DISORDER
     Dosage: 20 MG, UNK (10 YEARS)
  5. LOSAAR PLUS [Concomitant]
     Indication: HYPERTENSION
     Dosage: 100/25 MG, QD
  6. PURESIS [Concomitant]
     Active Substance: FUROSEMIDE
     Indication: DIURETIC THERAPY
     Dosage: 40 MG, UNK

REACTIONS (2)
  - Renal failure [Recovering/Resolving]
  - Cardiac failure [Recovering/Resolving]

NARRATIVE: CASE EVENT DATE: 20150129
